FAERS Safety Report 17780788 (Version 1)
Quarter: 2020Q2

REPORT INFORMATION
  Report Type: Spontaneous
  Country: US (occurrence: US)
  Receive Date: 20200513
  Receipt Date: 20200513
  Transmission Date: 20200714
  Serious: Yes (Hospitalization)
  Sender: FDA-Public Use
  Company Number: None

PATIENT
  Age: 65 Year
  Sex: Male
  Weight: 108 kg

DRUGS (2)
  1. SILDENAFIL (SILDENAFIL CITRATE 100MG TAB) [Suspect]
     Active Substance: SILDENAFIL
     Indication: ERECTILE DYSFUNCTION
     Dates: start: 20190514, end: 20200214
  2. LISINOPRIL (LISINOPRIL 40MG TAB) [Suspect]
     Active Substance: LISINOPRIL
     Indication: HYPERTENSION
     Route: 048
     Dates: start: 20170320, end: 20200214

REACTIONS (3)
  - Dizziness [None]
  - Hypotension [None]
  - Vision blurred [None]

NARRATIVE: CASE EVENT DATE: 20200213
